FAERS Safety Report 12750235 (Version 1)
Quarter: 2016Q3

REPORT INFORMATION
  Report Type: Report from Study
  Country: US (occurrence: US)
  Receive Date: 20160916
  Receipt Date: 20160916
  Transmission Date: 20161109
  Serious: Yes (Hospitalization)
  Sender: FDA-Public Use
  Company Number: US-BAYER-2016-178652

PATIENT
  Age: 45 Year
  Sex: Female

DRUGS (2)
  1. CLOPIDOGREL [Interacting]
     Active Substance: CLOPIDOGREL BISULFATE
     Indication: ANTIPLATELET THERAPY
     Dosage: DAILY DOSE 75 MG
  2. ASPIRIN. [Suspect]
     Active Substance: ASPIRIN
     Indication: ANTIPLATELET THERAPY
     Dosage: DAILY DOSE 325 MG

REACTIONS (3)
  - Haematoma [None]
  - Labelled drug-drug interaction medication error [None]
  - Drug administration error [None]
